FAERS Safety Report 7633573-6 (Version None)
Quarter: 2011Q3

REPORT INFORMATION
  Report Type: 
  Country: None (occurrence: None)
  Receive Date: 20110725
  Receipt Date: 20110705
  Transmission Date: 20111222
  Serious: Yes (Hospitalization)
  Sender: FDA-Public Use
  Company Number: US-GLAXOSMITHKLINE-A0869126A

PATIENT
  Age: 55 Year
  Sex: Male

DRUGS (3)
  1. AVANDIA [Suspect]
     Indication: INSULIN RESISTANCE
     Dosage: 8MG PER DAY
     Route: 048
     Dates: start: 20020305, end: 20021122
  2. GLUCOPHAGE [Concomitant]
  3. NEURONTIN [Concomitant]

REACTIONS (3)
  - DEPRESSION [None]
  - MYOCARDIAL INFARCTION [None]
  - ANXIETY [None]
